FAERS Safety Report 5210539-7 (Version None)
Quarter: 2007Q1

REPORT INFORMATION
  Report Type: 
  Country: None (occurrence: None)
  Receive Date: 20070117
  Receipt Date: 20070108
  Transmission Date: 20070707
  Serious: Yes (Hospitalization)
  Sender: FDA-Public Use
  Company Number: CA-ROCHE-477631

PATIENT
  Age: 46 Year
  Sex: Male

DRUGS (3)
  1. PEGASYS [Suspect]
     Indication: HEPATITIS C
     Dosage: FORM: PRE-FILLED SYRINGE (PFS).
     Route: 058
     Dates: start: 20060327
  2. COPEGUS [Suspect]
     Indication: HEPATITIS C
     Route: 048
     Dates: start: 20060327
  3. EPREX [Concomitant]
     Indication: ANAEMIA
     Dosage: STRENGHT AND FORMULATION REPORTED AS 20000 UNITS, PRE-FILLED SYRINGE (PFS).
     Route: 058

REACTIONS (2)
  - BLOOD PRESSURE DECREASED [None]
  - HAEMOGLOBIN DECREASED [None]
